FAERS Safety Report 22710085 (Version 4)
Quarter: 2023Q4

REPORT INFORMATION
  Report Type: Other
  Country: IN (occurrence: None)
  Receive Date: 20230717
  Receipt Date: 20231020
  Transmission Date: 20240109
  Serious: Yes (Death)
  Sender: FDA-Public Use
  Company Number: IN-ROCHE-3224376

PATIENT
  Age: 31 Year
  Sex: Female

DRUGS (1)
  1. TECENTRIQ [Suspect]
     Active Substance: ATEZOLIZUMAB
     Indication: Cervix carcinoma
     Route: 042
     Dates: start: 20221105

REACTIONS (3)
  - Off label use [Unknown]
  - Anaemia [Unknown]
  - Disease progression [Fatal]

NARRATIVE: CASE EVENT DATE: 20231009
